FAERS Safety Report 21432983 (Version 1)
Quarter: 2022Q4

REPORT INFORMATION
  Report Type: Spontaneous
  Country: US (occurrence: US)
  Receive Date: 20221010
  Receipt Date: 20221010
  Transmission Date: 20230112
  Serious: Yes (Hospitalization, Other)
  Sender: FDA-Public Use
  Company Number: US-ALLERGAN-2215540US

PATIENT
  Age: 40 Year
  Sex: Female
  Weight: 77.1 kg

DRUGS (10)
  1. VRAYLAR [Suspect]
     Active Substance: CARIPRAZINE
     Indication: Paranoia
     Dosage: 1.5 MG, QHS
     Route: 048
     Dates: start: 20220406, end: 20220413
  2. VRAYLAR [Suspect]
     Active Substance: CARIPRAZINE
     Indication: Hallucinations, mixed
  3. VRAYLAR [Suspect]
     Active Substance: CARIPRAZINE
     Indication: Schizoaffective disorder
  4. CAPLYTA [Suspect]
     Active Substance: LUMATEPERONE
     Indication: Schizophrenia
     Dosage: 42 MG, QHS
     Route: 048
     Dates: start: 20220415, end: 20220426
  5. LUVOX [Concomitant]
     Active Substance: FLUVOXAMINE MALEATE
     Indication: Depression
     Dosage: 50 MG
     Dates: end: 20220426
  6. LAMICTAL [Concomitant]
     Active Substance: LAMOTRIGINE
  7. GABAPENTIN [Concomitant]
     Active Substance: GABAPENTIN
  8. BUSPAR [Concomitant]
     Active Substance: BUSPIRONE HYDROCHLORIDE
  9. VITAMIN D2 [Concomitant]
     Active Substance: ERGOCALCIFEROL
  10. PRAZOSIN [Concomitant]
     Active Substance: PRAZOSIN

REACTIONS (10)
  - Neuroleptic malignant syndrome [Recovered/Resolved]
  - Myalgia [Recovered/Resolved]
  - Muscle spasms [Recovered/Resolved]
  - Off label use [Unknown]
  - Confusional state [Recovered/Resolved]
  - Musculoskeletal stiffness [Recovered/Resolved]
  - Akathisia [Recovered/Resolved]
  - Malaise [Recovered/Resolved]
  - Muscle rigidity [Recovered/Resolved]
  - Pain in extremity [Recovered/Resolved]

NARRATIVE: CASE EVENT DATE: 20220413
